FAERS Safety Report 4862503-5 (Version None)
Quarter: 2005Q4

REPORT INFORMATION
  Report Type: 
  Country: None (occurrence: None)
  Receive Date: 20051221
  Receipt Date: 20051212
  Transmission Date: 20060501
  Serious: Yes (Hospitalization)
  Sender: FDA-Public Use
  Company Number: JP-AVENTIS-200521004GDDC

PATIENT
  Age: 61 Year
  Sex: Male
  Weight: 52 kg

DRUGS (5)
  1. RIFADIN [Suspect]
     Indication: LYMPHADENITIS
     Route: 048
     Dates: start: 20051111, end: 20051120
  2. HYDRA [Concomitant]
     Indication: LYMPHADENITIS
     Route: 048
     Dates: start: 20051111, end: 20051122
  3. PYRAMIDE [Concomitant]
     Indication: LYMPHADENITIS
     Route: 048
     Dates: start: 20051111, end: 20051122
  4. ESANBUTOL [Concomitant]
     Indication: LYMPHADENITIS
     Route: 048
     Dates: start: 20051111, end: 20051122
  5. PYDOXAL [Concomitant]
     Indication: LYMPHADENITIS
     Route: 048
     Dates: start: 20051111, end: 20051122

REACTIONS (5)
  - ABDOMINAL PAIN [None]
  - LYMPH NODE PAIN [None]
  - PLATELET COUNT DECREASED [None]
  - RED BLOOD CELL COUNT DECREASED [None]
  - WHITE BLOOD CELL COUNT DECREASED [None]
